FAERS Safety Report 17022188 (Version 1)
Quarter: 2019Q4

REPORT INFORMATION
  Report Type: Spontaneous
  Country: US (occurrence: US)
  Receive Date: 20191008
  Receipt Date: 20191008
  Transmission Date: 20200122
  Serious: No
  Sender: FDA-Public Use
  Company Number: None

PATIENT
  Age: 55 Year
  Sex: Male
  Weight: 86.75 kg

DRUGS (1)
  1. PREGABALIN 300MG [Suspect]
     Active Substance: PREGABALIN
     Indication: CERVICAL RADICULOPATHY
     Dates: start: 20190815, end: 20190901

REACTIONS (3)
  - Drug ineffective [None]
  - Visual impairment [None]
  - Memory impairment [None]

NARRATIVE: CASE EVENT DATE: 20190815
